FAERS Safety Report 5347097-2 (Version None)
Quarter: 2007Q2

REPORT INFORMATION
  Report Type: 
  Country: None (occurrence: None)
  Receive Date: 20070604
  Receipt Date: 20070521
  Transmission Date: 20071010
  Serious: Yes (Hospitalization, Other)
  Sender: FDA-Public Use
  Company Number: 2005EN000212

PATIENT
  Age: 97 Month
  Sex: Male
  Weight: 13 kg

DRUGS (3)
  1. ADAGEN [Suspect]
     Indication: COMBINED IMMUNODEFICIENCY
     Dosage: SEE IMAGE
     Route: 030
     Dates: start: 20030727
  2. ADAGEN [Suspect]
  3. ADAGEN [Suspect]

REACTIONS (6)
  - ALPHA 1 FOETOPROTEIN INCREASED [None]
  - BLOOD TEST ABNORMAL [None]
  - HAEMOLYTIC ANAEMIA [None]
  - HEPATIC ENZYME INCREASED [None]
  - HEPATIC NEOPLASM MALIGNANT [None]
  - HEPATOBLASTOMA [None]
